FAERS Safety Report 15144992 (Version 1)
Quarter: 2018Q3

REPORT INFORMATION
  Report Type: Spontaneous
  Country: BR (occurrence: BR)
  Receive Date: 20180713
  Receipt Date: 20180713
  Transmission Date: 20181010
  Serious: Yes (Life-Threatening, Other)
  Sender: FDA-Public Use
  Company Number: BR-SA-2018SA179719

PATIENT
  Sex: Female

DRUGS (1)
  1. ALLEGRA [Suspect]
     Active Substance: FEXOFENADINE HYDROCHLORIDE
     Indication: RHINITIS ALLERGIC

REACTIONS (5)
  - Apparent death [Unknown]
  - Unevaluable event [Unknown]
  - Pyrexia [Unknown]
  - Heart rate increased [Unknown]
  - Malaise [Unknown]
